FAERS Safety Report 6409027-1 (Version None)
Quarter: 2009Q4

REPORT INFORMATION
  Report Type: 
  Country: None (occurrence: None)
  Receive Date: 20091021
  Receipt Date: 20091014
  Transmission Date: 20100525
  Serious: Yes (Hospitalization, Other)
  Sender: FDA-Public Use
  Company Number: CN-AVENTIS-200916814GDDC

PATIENT
  Age: 46 Year
  Sex: Female

DRUGS (2)
  1. LANTUS [Suspect]
     Indication: DIABETES MELLITUS
     Route: 058
     Dates: start: 20090630, end: 20090701
  2. INSULINS + ANA.,INTERIM.-ACT.,COMB.W/FAST ACT [Concomitant]
     Indication: DIABETES MELLITUS
     Route: 058

REACTIONS (9)
  - ANAPHYLACTIC REACTION [None]
  - DIZZINESS [None]
  - DYSPNOEA [None]
  - EATING DISORDER [None]
  - ERYTHEMA [None]
  - GASTROINTESTINAL DISORDER [None]
  - OEDEMA [None]
  - PHARYNGEAL OEDEMA [None]
  - WEIGHT DECREASED [None]
